FAERS Safety Report 11898657 (Version 2)
Quarter: 2016Q1

REPORT INFORMATION
  Report Type: Report from Study
  Country: CA (occurrence: CA)
  Receive Date: 20160108
  Receipt Date: 20160322
  Transmission Date: 20160526
  Serious: Yes (Life-Threatening)
  Sender: FDA-Public Use
  Company Number: CA-JNJFOC-20160104690

PATIENT
  Age: 35 Year
  Sex: Female
  Weight: 86.64 kg

DRUGS (12)
  1. REMICADE [Suspect]
     Active Substance: INFLIXIMAB
     Indication: SPONDYLOARTHROPATHY
     Dosage: THERAPY DURATION WAS REPORTED AS APPROXIMATELY 17 MONTHS
     Route: 042
     Dates: start: 20140428, end: 20151023
  2. REMICADE [Suspect]
     Active Substance: INFLIXIMAB
     Indication: CROHN^S DISEASE
     Route: 042
     Dates: start: 20151120
  3. METHOTREXATE [Suspect]
     Active Substance: METHOTREXATE
     Indication: CROHN^S DISEASE
     Route: 048
     Dates: start: 2003
  4. REMICADE [Suspect]
     Active Substance: INFLIXIMAB
     Indication: SPONDYLOARTHROPATHY
     Route: 042
     Dates: start: 20060308
  5. LEUCOVORIN. [Concomitant]
     Active Substance: LEUCOVORIN
     Indication: SPONDYLOARTHROPATHY
     Route: 048
     Dates: start: 2009
  6. FENTANYL. [Concomitant]
     Active Substance: FENTANYL
     Indication: CROHN^S DISEASE
     Route: 065
     Dates: start: 2011
  7. LEUCOVORIN. [Concomitant]
     Active Substance: LEUCOVORIN
     Indication: CROHN^S DISEASE
     Route: 048
     Dates: start: 2009
  8. REMICADE [Suspect]
     Active Substance: INFLIXIMAB
     Indication: SPONDYLOARTHROPATHY
     Route: 042
     Dates: start: 20151120
  9. REMICADE [Suspect]
     Active Substance: INFLIXIMAB
     Indication: CROHN^S DISEASE
     Dosage: THERAPY DURATION WAS REPORTED AS APPROXIMATELY 17 MONTHS
     Route: 042
     Dates: start: 20140428, end: 20151023
  10. REMICADE [Suspect]
     Active Substance: INFLIXIMAB
     Indication: CROHN^S DISEASE
     Route: 042
     Dates: start: 20060308
  11. PREDNISONE. [Suspect]
     Active Substance: PREDNISONE
     Indication: PRODUCT USED FOR UNKNOWN INDICATION
     Route: 048
     Dates: start: 2003, end: 2006
  12. OXYCOCET [Concomitant]
     Active Substance: ACETAMINOPHEN\OXYCODONE HYDROCHLORIDE
     Indication: CROHN^S DISEASE
     Route: 048
     Dates: start: 2006

REACTIONS (4)
  - Product use issue [Unknown]
  - Malignant melanoma in situ [Unknown]
  - Product use issue [Unknown]
  - Off label use [Unknown]

NARRATIVE: CASE EVENT DATE: 20060308
